FAERS Safety Report 23380993 (Version 2)
Quarter: 2024Q2

REPORT INFORMATION
  Report Type: Spontaneous
  Country: JP (occurrence: JP)
  Receive Date: 20240109
  Receipt Date: 20240401
  Transmission Date: 20240716
  Serious: Yes (Life-Threatening, Hospitalization, Other)
  Sender: FDA-Public Use
  Company Number: JP-TAKEDA-2024TJP000036

PATIENT

DRUGS (2)
  1. ZEJULA [Suspect]
     Active Substance: NIRAPARIB
     Indication: Ovarian cancer recurrent
     Dosage: 200 MG, QD
     Route: 048
  2. ZEJULA [Suspect]
     Active Substance: NIRAPARIB
     Dosage: UNK
     Route: 048

REACTIONS (2)
  - Ovarian cancer recurrent [Unknown]
  - Metastases to central nervous system [Recovering/Resolving]

NARRATIVE: CASE EVENT DATE: 20230905
